FAERS Safety Report 15924910 (Version 2)
Quarter: 2019Q1

REPORT INFORMATION
  Report Type: Spontaneous
  Country: JP (occurrence: JP)
  Receive Date: 20190206
  Receipt Date: 20190319
  Transmission Date: 20190417
  Serious: Yes (Death, Other)
  Sender: FDA-Public Use
  Company Number: PHJP2019JP001342

PATIENT
  Age: 73 Year
  Sex: Male

DRUGS (2)
  1. MEKINIST [Suspect]
     Active Substance: TRAMETINIB DIMETHYL SULFOXIDE
     Indication: MALIGNANT MELANOMA STAGE III
     Dosage: UNK
     Route: 048
     Dates: start: 201604
  2. TAFINLAR [Suspect]
     Active Substance: DABRAFENIB MESYLATE
     Indication: MALIGNANT MELANOMA STAGE III
     Dosage: UNK
     Route: 048
     Dates: start: 201604

REACTIONS (5)
  - Visual acuity reduced [Recovering/Resolving]
  - Malignant melanoma stage III [Fatal]
  - Deafness neurosensory [Unknown]
  - Malignant neoplasm progression [Fatal]
  - Uveitis [Unknown]
